FAERS Safety Report 4295456-1 (Version None)
Quarter: 2004Q1

REPORT INFORMATION
  Report Type: 
  Country: None (occurrence: None)
  Receive Date: 20040216
  Receipt Date: 20040128
  Transmission Date: 20041129
  Serious: Yes (Other)
  Sender: FDA-Public Use
  Company Number: JP-ROCHE-357568

PATIENT
  Age: 4 Year
  Sex: Female
  Weight: 17 kg

DRUGS (3)
  1. TAMIFLU [Suspect]
     Dosage: 3% DRY SYRUP. ADMINISTERED IN THE MORNINGS OF DAY 1 AND DAY 2.
     Route: 048
     Dates: start: 20040125, end: 20040127
  2. FLOMOX [Concomitant]
     Indication: BACTERIAL INFECTION
     Dosage: FORMULATION REPORTED AS: DRY SYRUP.
     Route: 048
     Dates: start: 20040125
  3. BIOFERMIN R [Concomitant]
     Indication: ENTERITIS
     Dosage: REPORTED AS LACB R.
     Route: 048
     Dates: start: 20040125

REACTIONS (5)
  - CHILLS [None]
  - HYPOAESTHESIA [None]
  - PALLOR [None]
  - PERIPHERAL COLDNESS [None]
  - TREMOR [None]
